FAERS Safety Report 7491187-5 (Version None)
Quarter: 2011Q2

REPORT INFORMATION
  Report Type: 
  Country: None (occurrence: None)
  Receive Date: 20110519
  Receipt Date: 20110512
  Transmission Date: 20111010
  Serious: Yes (Other)
  Sender: FDA-Public Use
  Company Number: BR-SANOFI-AVENTIS-2011SA028355

PATIENT
  Age: 51 Year
  Sex: Male
  Weight: 94 kg

DRUGS (9)
  1. METFORMIN HCL [Concomitant]
     Indication: TYPE 2 DIABETES MELLITUS
     Route: 048
  2. LANTUS [Suspect]
     Dosage: 10 ML VIAL
     Route: 058
     Dates: start: 20080101
  3. NPH INSULIN [Concomitant]
     Route: 065
     Dates: start: 20080101, end: 20080101
  4. LANTUS [Suspect]
     Indication: TYPE 2 DIABETES MELLITUS
     Dosage: 10 ML VIAL
     Route: 058
     Dates: start: 20051215, end: 20070101
  5. LANTUS [Suspect]
     Dosage: 10ML VIAL
     Route: 058
  6. ALL OTHER THERAPEUTIC PRODUCTS [Concomitant]
     Route: 048
  7. LEVEMIR [Concomitant]
     Route: 065
     Dates: start: 20070101, end: 20080101
  8. LANTUS [Suspect]
     Dosage: 10 ML VIAL
     Route: 058
     Dates: start: 20080101
  9. APIDRA [Concomitant]
     Indication: TYPE 2 DIABETES MELLITUS
     Route: 058

REACTIONS (6)
  - ARTERIAL OCCLUSIVE DISEASE [None]
  - WEIGHT INCREASED [None]
  - HYPERGLYCAEMIA [None]
  - CONFUSIONAL STATE [None]
  - FEELING ABNORMAL [None]
  - DRUG INEFFECTIVE [None]
